FAERS Safety Report 4403790-7 (Version None)
Quarter: 2004Q3

REPORT INFORMATION
  Report Type: 
  Country: None (occurrence: None)
  Receive Date: 20040721
  Receipt Date: 20030116
  Transmission Date: 20050211
  Serious: Yes (Other)
  Sender: FDA-Public Use
  Company Number: PHEH2003US00795

PATIENT
  Age: 73 Year
  Sex: Female

DRUGS (13)
  1. EPOGEN [Concomitant]
     Indication: ANAEMIA
     Dosage: 60000 UNITS WEEKLY
     Dates: start: 20020410, end: 20030415
  2. CYTOXAN [Concomitant]
     Indication: BREAST CANCER
     Dosage: EVERY 3 WEEKS WITH METHOTREXATE
     Dates: start: 20010607, end: 20011003
  3. FEMARA [Concomitant]
     Indication: BREAST CANCER
     Dosage: 2.5 MG, QD
     Route: 048
     Dates: start: 20001220, end: 20010417
  4. ARIMIDEX [Concomitant]
     Indication: BREAST CANCER
     Dosage: 1 MG, QD
     Route: 048
     Dates: start: 20000823, end: 20001220
  5. TAXOL [Concomitant]
     Indication: BREAST CANCER
     Dosage: 128 MG WEEKLY
     Route: 048
     Dates: start: 20000517, end: 20000816
  6. AREDIA [Suspect]
     Indication: METASTASES TO BONE
     Dosage: 90 MG EVERY MONTH
     Route: 042
     Dates: start: 20000526, end: 20020327
  7. ZOLEDRONATE [Suspect]
     Indication: METASTASES TO BONE
     Dosage: 4 MG MONTHLY
     Dates: start: 20020424, end: 20020717
  8. TAXOL [Concomitant]
     Indication: BREAST CANCER METASTATIC
     Dosage: 128 MG, UNK
     Route: 042
     Dates: start: 20000517, end: 20000816
  9. VINORELBINE TARTRATE [Concomitant]
     Indication: BREAST CANCER METASTATIC
     Dosage: 50 MG, ONE TIME ONLY DOSE
     Dates: start: 20010522
  10. CARBOPLATIN [Concomitant]
     Indication: BREAST CANCER METASTATIC
     Dosage: 400 MG MONTHLY
     Dates: start: 20011205, end: 20020130
  11. XELODA [Concomitant]
     Indication: BREAST CANCER METASTATIC
     Dosage: 1500 MG BID X 14 DAYS MONTHLY
     Route: 048
     Dates: start: 20020227, end: 20020920
  12. ATENOLOL [Concomitant]
     Dosage: 50 MG, QD
  13. LIPITOR [Concomitant]
     Dosage: 10 MG, UNK

REACTIONS (9)
  - FISTULA [None]
  - IMPAIRED HEALING [None]
  - OSTECTOMY [None]
  - OSTEOMYELITIS [None]
  - OSTEONECROSIS [None]
  - PURULENT DISCHARGE [None]
  - TOOTH EXTRACTION [None]
  - TOOTH IMPACTED [None]
  - WOUND DEBRIDEMENT [None]
